FAERS Safety Report 5287958-6 (Version None)
Quarter: 2007Q2

REPORT INFORMATION
  Report Type: 
  Country: None (occurrence: None)
  Receive Date: 20070405
  Receipt Date: 20070327
  Transmission Date: 20071010
  Serious: Yes (Other)
  Sender: FDA-Public Use
  Company Number: JP-JNJFOC-20070400155

PATIENT
  Age: 50 Year
  Sex: Male

DRUGS (2)
  1. DUROTEP [Suspect]
     Indication: DRUG USE FOR UNKNOWN INDICATION
     Dosage: DOSE WAS 25 MCG/HR - (HALF AREA)
     Route: 062
  2. TAMIFLU [Suspect]
     Indication: DRUG USE FOR UNKNOWN INDICATION
     Route: 048

REACTIONS (2)
  - LIVER DISORDER [None]
  - WRONG TECHNIQUE IN DRUG USAGE PROCESS [None]
